FAERS Safety Report 5605287-5 (Version None)
Quarter: 2008Q1

REPORT INFORMATION
  Report Type: 
  Country: None (occurrence: None)
  Receive Date: 20080123
  Receipt Date: 20080123
  Transmission Date: 20080703
  Serious: No
  Sender: FDA-Public Use
  Company Number: None

PATIENT
  Age: 62 Year
  Sex: Female

DRUGS (10)
  1. BOTOX [Suspect]
     Indication: HEADACHE
     Dosage: SEE NARRATIVE
     Dates: start: 20020301, end: 20040401
  2. SYNTHROID [Concomitant]
  3. DIGESTIVE ENZYMES [Concomitant]
  4. ZYPREXA [Concomitant]
  5. HALCION [Concomitant]
  6. VICODIN [Concomitant]
  7. ZANAFLEX [Concomitant]
  8. ULTRAM [Concomitant]
  9. RITALIN [Concomitant]
  10. HORMONE PATCH [Concomitant]

REACTIONS (7)
  - ALOPECIA [None]
  - ANGIOLIPOMA [None]
  - DRY EYE [None]
  - DRY MOUTH [None]
  - GAIT DISTURBANCE [None]
  - MUSCLE SPASMS [None]
  - MUSCULAR WEAKNESS [None]
